FAERS Safety Report 19697261 (Version 1)
Quarter: 2021Q3

REPORT INFORMATION
  Report Type: Report from Study
  Country: US (occurrence: US)
  Receive Date: 20210813
  Receipt Date: 20210813
  Transmission Date: 20211014
  Serious: Yes (Hospitalization)
  Sender: FDA-Public Use
  Company Number: US-SERVIER-S21008633

PATIENT

DRUGS (16)
  1. PEGASPARGASE [Suspect]
     Active Substance: PEGASPARGASE
     Dosage: 2850 IU, ONE DOSE
     Route: 042
     Dates: start: 20210514
  2. TN UNSPECIFIED [DEXAMETHASONE] [Suspect]
     Active Substance: DEXAMETHASONE
     Dosage: 1.7 MG QD ON DAYS 30?32
     Route: 048
     Dates: start: 20210514
  3. TN UNSPECIFIED [CYCLOPHOSPHAMIDE] [Suspect]
     Active Substance: CYCLOPHOSPHAMIDE
     Indication: ACUTE LYMPHOCYTIC LEUKAEMIA
     Dosage: 1100 MG ON DAY 1
     Route: 042
     Dates: start: 20210615, end: 20210615
  4. PEGASPARGASE [Suspect]
     Active Substance: PEGASPARGASE
     Dosage: 2760 IU, ONE DOSE
     Route: 042
     Dates: start: 20210630, end: 20210630
  5. TN UNSPECIFIED [RUXOLITINIB PHOSPHATE] [Suspect]
     Active Substance: RUXOLITINIB PHOSPHATE
     Indication: ACUTE LYMPHOCYTIC LEUKAEMIA
     Dosage: 55 MG, BID
     Route: 048
     Dates: start: 20210615, end: 20210628
  6. TN UNSPECIFIED [METHOTREXATE] [Concomitant]
     Active Substance: METHOTREXATE
     Indication: ACUTE LYMPHOCYTIC LEUKAEMIA
     Dosage: 15 MG, EVERY 1 WEEK
     Route: 037
     Dates: start: 20210615, end: 20210706
  7. TN UNSPECIFIED [DEXAMETHASONE] [Suspect]
     Active Substance: DEXAMETHASONE
     Indication: ACUTE LYMPHOCYTIC LEUKAEMIA
     Dosage: 3.4 MG, BID ON DAYS 4?24
     Route: 048
     Dates: start: 20210514
  8. TN UNSPECIFIED [DOXORUBICIN HYDROCHLORIDE] [Suspect]
     Active Substance: DOXORUBICIN HYDROCHLORIDE
     Indication: ACUTE LYMPHOCYTIC LEUKAEMIA
     Dosage: 34 MG, QD ON DAYS 4 AND 5
     Route: 042
     Dates: start: 20210514
  9. TN UNSPECIFIED [VINCRISTINE SULFATE] [Concomitant]
     Active Substance: VINCRISTINE SULFATE
     Indication: ACUTE LYMPHOCYTIC LEUKAEMIA
     Dosage: 1.7 MG ON ON DAYS 4, 11, AND 25
     Route: 042
     Dates: start: 20210514
  10. TN UNSPECIFIED [VINCRISTINE SULFATE] [Concomitant]
     Active Substance: VINCRISTINE SULFATE
     Dosage: 1.65 MG ON DAYS 15 AND 22
     Route: 042
     Dates: start: 20210629, end: 20210706
  11. TN UNSPECIFIED [DEXAMETHASONE] [Suspect]
     Active Substance: DEXAMETHASONE
     Dosage: 3.4 MG, QD ON DAYS 25?59
     Route: 048
     Dates: start: 20210514
  12. TN UNSPECIFIED [Concomitant]
     Indication: PRODUCT USED FOR UNKNOWN INDICATION
     Dosage: 340 MG, QD ON DAYS 4 AND 5
     Dates: start: 20210514
  13. TN UNSPECIFIED [Concomitant]
     Indication: PRODUCT USED FOR UNKNOWN INDICATION
     Dosage: UNK
     Route: 065
     Dates: start: 20210704
  14. TN UNSPECIFIED [MERCAPTOPURINE] [Suspect]
     Active Substance: MERCAPTOPURINE
     Indication: ACUTE LYMPHOCYTIC LEUKAEMIA
     Dosage: 69 MG, QD
     Route: 048
     Dates: start: 20210615, end: 20210628
  15. TN UNSPECIFIED [CYTARABINE] [Suspect]
     Active Substance: CYTARABINE
     Dosage: 82.5 MG ON DAYS 1?4 AND 8?11
     Route: 042
     Dates: start: 20210615, end: 20210625
  16. TN UNSPECIFIED [CYTARABINE] [Suspect]
     Active Substance: CYTARABINE
     Indication: ACUTE LYMPHOCYTIC LEUKAEMIA
     Dosage: 40 MG ON DAY 8
     Route: 037
     Dates: start: 20210514

REACTIONS (1)
  - Neutropenic colitis [Recovered/Resolved]

NARRATIVE: CASE EVENT DATE: 20210708
